FAERS Safety Report 17339490 (Version 1)
Quarter: 2020Q1

REPORT INFORMATION
  Report Type: Spontaneous
  Country: US (occurrence: US)
  Receive Date: 20200128
  Receipt Date: 20200128
  Transmission Date: 20200409
  Serious: Yes (Death)
  Sender: FDA-Public Use
  Company Number: None

PATIENT
  Age: 60 Year
  Sex: Male

DRUGS (20)
  1. DOXYCYCL HYC TAB 100MG [Concomitant]
     Dates: start: 20200108, end: 20200126
  2. FENTANYL TRANSDERMAL SYSTEM [Concomitant]
     Active Substance: FENTANYL
     Dates: start: 20200114, end: 20200126
  3. FUROSEMIDE TAB 20MG [Concomitant]
     Dates: start: 20200114, end: 20200126
  4. MIRTAZAPINE TAB 15MG [Concomitant]
     Dates: start: 20191203, end: 20200126
  5. POT CL MICRO TAB 20MEQ ER [Concomitant]
     Dates: start: 20191203, end: 20200126
  6. CAPECITABINE. [Suspect]
     Active Substance: CAPECITABINE
     Indication: CHOLANGIOCARCINOMA
     Dosage: ?          OTHER FREQUENCY:3X TAB TWICE DAILY;?
     Route: 048
     Dates: start: 20190215, end: 20200126
  7. GLIMEPIRIDE TAB 1MG [Concomitant]
     Dates: start: 20190904, end: 20200126
  8. OXYCONTIN TAB 10MG CR [Concomitant]
     Dates: start: 20191227, end: 20200126
  9. METOPROL SUC TAB 50MG ER [Concomitant]
     Dates: start: 20191007, end: 20200126
  10. ROSUVASTATIN TAB 5MG [Concomitant]
     Active Substance: ROSUVASTATIN
     Dates: start: 20190819, end: 20200126
  11. CHLORTHALID TAB 25MG [Concomitant]
     Dates: start: 20200105, end: 20200126
  12. JARDIANCE [Concomitant]
     Active Substance: EMPAGLIFLOZIN
     Dates: start: 20191222, end: 20200126
  13. ELIQUIS TAB 5MG [Concomitant]
     Dates: start: 20191211, end: 20200126
  14. RAMIPRIL CAP 10MG [Concomitant]
     Active Substance: RAMIPRIL
     Dates: start: 20190606, end: 20200126
  15. TRAMADOL HCL TAB 50MG [Concomitant]
     Dates: start: 20191217
  16. CAPECITABINE. [Suspect]
     Active Substance: CAPECITABINE
     Indication: HEPATIC CANCER
     Dosage: ?          OTHER FREQUENCY:3X TAB TWICE DAILY;?
     Route: 048
     Dates: start: 20190215, end: 20200126
  17. ANORO ELLIPT AER 62.5-25 [Concomitant]
     Dates: start: 20191028, end: 20200126
  18. IPRATROPIUM/ SOL ALBUTER [Concomitant]
     Dates: start: 20191126, end: 20200126
  19. LORAZEPAM TAB 1MG [Concomitant]
     Dates: start: 20191211, end: 20200126
  20. LOSARTAN POT TAB 25MG [Concomitant]
     Dates: start: 20191209, end: 20200126

REACTIONS (1)
  - Death [None]

NARRATIVE: CASE EVENT DATE: 20200126
